FAERS Safety Report 16819135 (Version 2)
Quarter: 2019Q3

REPORT INFORMATION
  Report Type: Report from Study
  Country: TW (occurrence: TW)
  Receive Date: 20190917
  Receipt Date: 20190924
  Transmission Date: 20191005
  Serious: Yes (Death, Hospitalization)
  Sender: FDA-Public Use
  Company Number: TW-CELGENEUS-TWN-20190904232

PATIENT
  Age: 65 Year
  Sex: Male

DRUGS (11)
  1. NEBILET [Concomitant]
     Active Substance: NEBIVOLOL
     Indication: HYPERTENSION
     Route: 048
     Dates: start: 20190629
  2. ACTEIN [Concomitant]
     Indication: SPUTUM DECREASED
     Route: 048
     Dates: start: 20190629
  3. VERAPAMIL HYDROCHLORIDE. [Concomitant]
     Active Substance: VERAPAMIL HYDROCHLORIDE
     Indication: HYPERTENSION
     Route: 065
     Dates: start: 20190629
  4. NAB-PACLITAXEL [Suspect]
     Active Substance: PACLITAXEL
     Indication: NON-SMALL CELL LUNG CANCER STAGE IV
     Dosage: 164 MG
     Route: 041
     Dates: start: 20190723, end: 20190723
  5. MEGEST [Concomitant]
     Indication: DECREASED APPETITE
     Route: 048
     Dates: start: 20190703
  6. ZODENOX [Concomitant]
     Indication: INSOMNIA
     Route: 048
     Dates: start: 20190629
  7. MEDI4736 [Suspect]
     Active Substance: DURVALUMAB
     Indication: NON-SMALL CELL LUNG CANCER STAGE IV
     Dosage: 1500 MG
     Route: 042
     Dates: start: 20190723, end: 20190723
  8. CARBOPLATIN. [Suspect]
     Active Substance: CARBOPLATIN
     Indication: NON-SMALL CELL LUNG CANCER STAGE IV
     Dosage: 622.3 MG
     Route: 041
     Dates: start: 20190723, end: 20190723
  9. RASITOL [Concomitant]
     Indication: HYPERTENSION
     Route: 048
     Dates: start: 20190629
  10. MEDICON-A [Concomitant]
     Indication: HAEMOPTYSIS
     Route: 048
     Dates: start: 20190703
  11. TRANSAMIN [Concomitant]
     Active Substance: TRANEXAMIC ACID
     Indication: HAEMOPTYSIS
     Route: 048
     Dates: start: 20190703

REACTIONS (2)
  - Drug-induced liver injury [Not Recovered/Not Resolved]
  - Hepatic failure [Fatal]

NARRATIVE: CASE EVENT DATE: 20190802
